FAERS Safety Report 9238192 (Version 2)
Quarter: 2013Q2

REPORT INFORMATION
  Report Type: Spontaneous
  Country: US (occurrence: None)
  Receive Date: 20130415
  Receipt Date: 20130415
  Transmission Date: 20140414
  Serious: Yes (Hospitalization, Other)
  Sender: FDA-Public Use
  Company Number: 2013-00957

PATIENT
  Sex: Female

DRUGS (2)
  1. LEVETIRACETAM TABLETS 250MG (LEVETIRACETAM) [Suspect]
     Indication: PRODUCT USED FOR UNKNOWN INDICATION
  2. LEVETIRACETAM TABLETS 1000MG (LEVETIRACETAM) [Suspect]
     Indication: PRODUCT USED FOR UNKNOWN INDICATION

REACTIONS (3)
  - Convulsion [None]
  - Exposure during pregnancy [None]
  - Drug level decreased [None]
